FAERS Safety Report 16183375 (Version 1)
Quarter: 2019Q2

REPORT INFORMATION
  Report Type: Report from Study
  Country: RO (occurrence: RO)
  Receive Date: 20190411
  Receipt Date: 20190411
  Transmission Date: 20190711
  Serious: Yes (Hospitalization)
  Sender: FDA-Public Use
  Company Number: RO-ROCHE-2296994

PATIENT
  Sex: Female
  Weight: 80 kg

DRUGS (1)
  1. HERCEPTIN [Suspect]
     Active Substance: TRASTUZUMAB
     Indication: BREAST CANCER
     Route: 058
     Dates: start: 20180523, end: 201903

REACTIONS (5)
  - Malaise [Unknown]
  - Dizziness [Unknown]
  - Peripheral swelling [Unknown]
  - Swelling face [Unknown]
  - Cardiac failure [Unknown]
